FAERS Safety Report 8060271-X (Version None)
Quarter: 2012Q1

REPORT INFORMATION
  Report Type: 
  Country: None (occurrence: None)
  Receive Date: 20120120
  Receipt Date: 20120111
  Transmission Date: 20120608
  Serious: Yes (Other)
  Sender: FDA-Public Use
  Company Number: US-GLAXOSMITHKLINE-A0960994A

PATIENT
  Sex: Male

DRUGS (2)
  1. ANTIHISTAMINE [Concomitant]
  2. ARZERRA [Suspect]
     Indication: NON-HODGKIN'S LYMPHOMA
     Dosage: 100MG WEEKLY
     Route: 042
     Dates: start: 20111101, end: 20111201

REACTIONS (4)
  - THROAT TIGHTNESS [None]
  - MOOD ALTERED [None]
  - FEELING ABNORMAL [None]
  - EYE SWELLING [None]
